FAERS Safety Report 12100107 (Version 1)
Quarter: 2016Q1

REPORT INFORMATION
  Report Type: Spontaneous
  Country: US (occurrence: None)
  Receive Date: 20160219
  Receipt Date: 20160219
  Transmission Date: 20160526
  Serious: Yes (Disabling, Other)
  Sender: FDA-Public Use
  Company Number: None

PATIENT
  Age: 63 Year
  Sex: Male
  Weight: 100 kg

DRUGS (18)
  1. DIPHENOXYLATE [Concomitant]
     Active Substance: DIPHENOXYLATE
  2. ATORVASTATIN [Concomitant]
     Active Substance: ATORVASTATIN
  3. LOSARTAN. [Concomitant]
     Active Substance: LOSARTAN
  4. LANTUS [Concomitant]
     Active Substance: INSULIN GLARGINE
  5. HUMALOG [Concomitant]
     Active Substance: INSULIN LISPRO
  6. CALCIUM [Concomitant]
     Active Substance: CALCIUM
  7. MAGNESIUM CITRATE. [Concomitant]
     Active Substance: MAGNESIUM CITRATE
  8. METFORMIN [Concomitant]
     Active Substance: METFORMIN HYDROCHLORIDE
  9. AMLODIPINE [Concomitant]
     Active Substance: AMLODIPINE BESYLATE
  10. CYCLOBENZAPRINE [Concomitant]
     Active Substance: CYCLOBENZAPRINE
  11. SENIOR MULTIVITAMIN [Concomitant]
  12. WARFARIN [Concomitant]
     Active Substance: WARFARIN
  13. VITAMIN D [Concomitant]
     Active Substance: CHOLECALCIFEROL
  14. LYRICA [Concomitant]
     Active Substance: PREGABALIN
  15. NORTRIPTYLINE [Concomitant]
     Active Substance: NORTRIPTYLINE
  16. OXYCODONE [Concomitant]
     Active Substance: OXYCODONE
  17. BUSPIRONE [Concomitant]
     Active Substance: BUSPIRONE HYDROCHLORIDE
  18. HUMALOG KWIKPEN [Suspect]
     Active Substance: INSULIN LISPRO
     Indication: DIABETES MELLITUS
     Dosage: 6 U + SLIDING SCALE + CARB COUN  GIVEN INTO/UDER THE SKIN

REACTIONS (7)
  - Injection site pain [None]
  - Blood blister [None]
  - Infection [None]
  - Product quality issue [None]
  - Injection site discolouration [None]
  - Injection site swelling [None]
  - Injection site vesicles [None]

NARRATIVE: CASE EVENT DATE: 20160210
